FAERS Safety Report 10269247 (Version 8)
Quarter: 2014Q4

REPORT INFORMATION
  Report Type: Report from Study
  Country: DE (occurrence: DE)
  Receive Date: 20140701
  Receipt Date: 20141117
  Transmission Date: 20150528
  Serious: Yes (Hospitalization, Other)
  Sender: FDA-Public Use
  Company Number: DE-ROCHE-1392403

PATIENT
  Age: 56 Year
  Sex: Male
  Weight: 75 kg

DRUGS (11)
  1. ENBREL [Suspect]
     Active Substance: ETANERCEPT
     Indication: POLYARTHRITIS
     Route: 058
     Dates: start: 20140429
  2. TOCILIZUMAB [Suspect]
     Active Substance: TOCILIZUMAB
     Indication: RHEUMATOID ARTHRITIS
     Dosage: =600 MG
     Route: 042
     Dates: start: 20140304, end: 20140428
  3. TOCILIZUMAB [Suspect]
     Active Substance: TOCILIZUMAB
     Indication: POLYARTHRITIS
  4. PANTOPRAZOLE [Concomitant]
     Active Substance: PANTOPRAZOLE SODIUM
     Indication: GASTRITIS
     Dosage: LAST DOSE PRIOR TO EVENT WAS 28/APR/2014.
     Route: 048
     Dates: start: 20140428
  5. CARVEDILOL. [Concomitant]
     Active Substance: CARVEDILOL
     Indication: HYPERTENSION
     Dosage: LAST DOSE PRIOR TO EVENT WAS 28/APR/2014.
     Route: 048
     Dates: start: 20140428
  6. DECORTIN [Concomitant]
     Active Substance: PREDNISONE
     Route: 065
  7. VIGANTOLETTEN [Concomitant]
     Active Substance: CHOLECALCIFEROL
     Route: 065
  8. FUROSEMIDE. [Concomitant]
     Active Substance: FUROSEMIDE
     Indication: HYPERTENSION
     Dosage: LAST DOSE PRIOR TO EVENT WAS ON 28/APR/2014.
     Route: 048
     Dates: start: 20140428
  9. TAMSULOSIN [Concomitant]
     Active Substance: TAMSULOSIN
     Indication: BENIGN PROSTATIC HYPERPLASIA
     Dosage: LAST DOSE PRIOR TO EVENT WAS 28/APR/2014.
     Route: 048
     Dates: start: 20140428
  10. BIFITERAL [Concomitant]
     Active Substance: LACTULOSE
  11. FUROSEMIDE. [Concomitant]
     Active Substance: FUROSEMIDE
     Indication: ASCITES

REACTIONS (9)
  - Hepatic cirrhosis [Not Recovered/Not Resolved]
  - Cholecystitis [Recovered/Resolved]
  - Varices oesophageal [Unknown]
  - Weight decreased [Unknown]
  - Peritonitis bacterial [Unknown]
  - Hepatic failure [Not Recovered/Not Resolved]
  - Cholelithiasis [Recovered/Resolved]
  - Cholangitis [Unknown]
  - Large intestine polyp [Recovered/Resolved]

NARRATIVE: CASE EVENT DATE: 20140323
